FAERS Safety Report 15390941 (Version 1)
Quarter: 2018Q3

REPORT INFORMATION
  Report Type: Spontaneous
  Country: US (occurrence: US)
  Receive Date: 20180910
  Receipt Date: 20180910
  Transmission Date: 20181010
  Serious: Yes (Hospitalization)
  Sender: FDA-Public Use
  Company Number: None

PATIENT
  Age: 55 Year
  Sex: Male
  Weight: 138.35 kg

DRUGS (1)
  1. ORBACTIV [Suspect]
     Active Substance: ORITAVANCIN
     Indication: OSTEOMYELITIS
     Route: 042
     Dates: start: 20180716, end: 20180730

REACTIONS (8)
  - Headache [None]
  - Vomiting [None]
  - Chills [None]
  - Restlessness [None]
  - Dyspnoea [None]
  - Nausea [None]
  - Back pain [None]
  - Feeling cold [None]

NARRATIVE: CASE EVENT DATE: 20180730
